FAERS Safety Report 19888094 (Version 1)
Quarter: 2021Q3

REPORT INFORMATION
  Report Type: Report from Study
  Country: DE (occurrence: CH)
  Receive Date: 20210927
  Receipt Date: 20210927
  Transmission Date: 20211014
  Serious: Yes (Hospitalization)
  Sender: FDA-Public Use
  Company Number: DE-SEAGEN-2021SGN03302

PATIENT
  Sex: Female

DRUGS (22)
  1. CYCLOPHOSPHAMIDE. [Concomitant]
     Active Substance: CYCLOPHOSPHAMIDE
     Dosage: 1250 MILLIGRAM/SQ. METER
     Route: 065
     Dates: start: 20210625
  2. CYCLOPHOSPHAMIDE. [Concomitant]
     Active Substance: CYCLOPHOSPHAMIDE
     Dosage: 650 MILLIGRAM/SQ. METER
     Route: 065
     Dates: start: 20210806
  3. DOXORUBICIN [DOXORUBICIN HYDROCHLORIDE] [Concomitant]
     Active Substance: DOXORUBICIN HYDROCHLORIDE
     Dosage: 40 MILLIGRAM/SQ. METER
     Route: 065
     Dates: start: 20210625
  4. CYCLOPHOSPHAMIDE. [Concomitant]
     Active Substance: CYCLOPHOSPHAMIDE
     Indication: HODGKIN^S DISEASE
     Dosage: 1250 MILLIGRAM/SQ. METER
     Route: 065
     Dates: start: 20210604, end: 20210605
  5. DACARBAZINE. [Concomitant]
     Active Substance: DACARBAZINE
     Dosage: 250 MILLIGRAM/SQ. METER
     Route: 065
     Dates: start: 20210807
  6. ETOPOSIDE. [Concomitant]
     Active Substance: ETOPOSIDE
     Dosage: 100 MILLIGRAM/SQ. METER
     Route: 065
     Dates: start: 20210806
  7. PANTOZOLE [Concomitant]
     Active Substance: PANTOPRAZOLE SODIUM
     Dosage: 20 MILLIGRAM
     Route: 065
     Dates: start: 20210604, end: 20210613
  8. BRENTUXIMAB VEDOTIN?MPI [Suspect]
     Active Substance: BRENTUXIMAB VEDOTIN
     Dosage: 12 MILLIGRAM/KILOGRAM
     Route: 065
     Dates: start: 20210624
  9. DOXORUBICIN [DOXORUBICIN HYDROCHLORIDE] [Concomitant]
     Active Substance: DOXORUBICIN HYDROCHLORIDE
     Dosage: 35 MILLIGRAM/SQ. METER
     Route: 065
     Dates: start: 20210806
  10. ETOPOSIDE. [Concomitant]
     Active Substance: ETOPOSIDE
     Dosage: 150 MILLIGRAM/SQ. METER
     Route: 065
     Dates: start: 20210625
  11. BRENTUXIMAB VEDOTIN?MPI [Suspect]
     Active Substance: BRENTUXIMAB VEDOTIN
     Indication: HODGKIN^S DISEASE
     Dosage: 18 MILLIGRAM/KILOGRAM
     Route: 065
     Dates: start: 20210603, end: 20210604
  12. BRENTUXIMAB VEDOTIN?MPI [Suspect]
     Active Substance: BRENTUXIMAB VEDOTIN
     Dosage: 1.8 MILLIGRAM/KILOGRAM
     Route: 065
     Dates: start: 20210805
  13. DEXAMETHASONE. [Concomitant]
     Active Substance: DEXAMETHASONE
     Indication: HODGKIN^S DISEASE
     Dosage: 40 MILLIGRAM
     Route: 065
     Dates: start: 20210604, end: 20210608
  14. DEXAMETHASONE. [Concomitant]
     Active Substance: DEXAMETHASONE
     Dosage: 40 MILLIGRAM
     Route: 065
     Dates: start: 20210625
  15. ETOPOSIDE. [Concomitant]
     Active Substance: ETOPOSIDE
     Indication: HODGKIN^S DISEASE
     Dosage: 150 MILLIGRAM/SQ. METER
     Route: 065
     Dates: start: 20210604, end: 20210607
  16. BACTRIM [Concomitant]
     Active Substance: SULFAMETHOXAZOLE\TRIMETHOPRIM
     Dosage: UNK, 3/WEEK
     Route: 065
     Dates: start: 20210604, end: 20210811
  17. PASPERTIN [METOCLOPRAMIDE HYDROCHLORIDE] [Concomitant]
     Active Substance: METOCLOPRAMIDE HYDROCHLORIDE
     Indication: HODGKIN^S DISEASE
     Dosage: 10 MILLIGRAM
     Route: 065
     Dates: start: 20210606, end: 20210613
  18. DOXORUBICIN [DOXORUBICIN HYDROCHLORIDE] [Concomitant]
     Active Substance: DOXORUBICIN HYDROCHLORIDE
     Indication: HODGKIN^S DISEASE
     Dosage: 40 MILLIGRAM/SQ. METER
     Route: 065
     Dates: start: 20210604, end: 20210605
  19. DACARBAZINE. [Concomitant]
     Active Substance: DACARBAZINE
     Indication: HODGKIN^S DISEASE
     Dosage: 250 MILLIGRAM/SQ. METER
     Route: 065
     Dates: start: 20210605, end: 20210607
  20. DEXAMETHASONE. [Concomitant]
     Active Substance: DEXAMETHASONE
     Dosage: 40 MILLIGRAM/SQ. METER
     Route: 065
     Dates: start: 20210806
  21. DACARBAZINE. [Concomitant]
     Active Substance: DACARBAZINE
     Dosage: 250 MILLIGRAM/SQ. METER
     Route: 065
     Dates: start: 20210626
  22. ZYLORIC [Concomitant]
     Active Substance: ALLOPURINOL
     Dosage: 300 MILLIGRAM
     Route: 065
     Dates: start: 20210605, end: 20210613

REACTIONS (5)
  - Infection [Recovered/Resolved]
  - Febrile neutropenia [Recovered/Resolved]
  - Pyrexia [Recovered/Resolved]
  - Aplasia [Recovered/Resolved]
  - Diarrhoea [Recovered/Resolved]

NARRATIVE: CASE EVENT DATE: 20210613
